FAERS Safety Report 10314207 (Version 2)
Quarter: 2018Q2

REPORT INFORMATION
  Report Type: Spontaneous
  Country: ES (occurrence: ES)
  Receive Date: 20140718
  Receipt Date: 20180626
  Transmission Date: 20180711
  Serious: Yes (Hospitalization, Other)
  Sender: FDA-Public Use
  Company Number: PHHY2014ES086185

PATIENT
  Age: 25 Year
  Sex: Male

DRUGS (1)
  1. IBUPROFEN. [Suspect]
     Active Substance: IBUPROFEN
     Indication: HEADACHE
     Dosage: 2 DF, UNK (BUSCO, SEVERAL TABLETS)
     Route: 048

REACTIONS (6)
  - Acute kidney injury [Recovered/Resolved]
  - Suicide attempt [Unknown]
  - Gastrointestinal haemorrhage [Unknown]
  - Back pain [Recovered/Resolved]
  - Flank pain [Unknown]
  - Blood creatinine increased [Unknown]

NARRATIVE: CASE EVENT DATE: 2011
